FAERS Safety Report 25312412 (Version 1)
Quarter: 2025Q2

REPORT INFORMATION
  Report Type: Spontaneous
  Country: MX (occurrence: MX)
  Receive Date: 20250514
  Receipt Date: 20250514
  Transmission Date: 20250717
  Serious: Yes (Other)
  Sender: ASTELLAS
  Company Number: MX-ASTELLAS-2025-AER-024916

PATIENT
  Age: 36 Year
  Sex: Male

DRUGS (2)
  1. CRESEMBA [Suspect]
     Active Substance: ISAVUCONAZONIUM SULFATE
     Indication: Product used for unknown indication
     Route: 048
  2. CLADRIBINE [Suspect]
     Active Substance: CLADRIBINE
     Indication: Product used for unknown indication
     Route: 065

REACTIONS (1)
  - Asthma [Unknown]
